FAERS Safety Report 18764426 (Version 11)
Quarter: 2021Q3

REPORT INFORMATION
  Report Type: Report from Study
  Country: US (occurrence: US)
  Receive Date: 20210120
  Receipt Date: 20210816
  Transmission Date: 20211014
  Serious: No
  Sender: FDA-Public Use
  Company Number: NVSC2021US010300

PATIENT
  Sex: Female

DRUGS (1)
  1. COSENTYX [Suspect]
     Active Substance: SECUKINUMAB
     Indication: PSORIATIC ARTHROPATHY
     Dosage: 150 MG, QMO
     Route: 058

REACTIONS (6)
  - Localised infection [Unknown]
  - Therapeutic product effect incomplete [Recovered/Resolved]
  - Fall [Unknown]
  - Arthralgia [Unknown]
  - Skin plaque [Recovered/Resolved]
  - Infection [Unknown]
